FAERS Safety Report 8478941-8 (Version None)
Quarter: 2012Q2

REPORT INFORMATION
  Report Type: 
  Country: None (occurrence: None)
  Receive Date: 20120629
  Receipt Date: 20120618
  Transmission Date: 20120825
  Serious: Yes (Other)
  Sender: FDA-Public Use
  Company Number: NO-ROCHE-1082397

PATIENT
  Sex: Female

DRUGS (3)
  1. MABTHERA [Suspect]
     Indication: RHEUMATOID ARTHRITIS
     Dates: start: 20080601
  2. METHOTREXATE [Concomitant]
  3. MABTHERA [Suspect]
     Dosage: GIVEN AFTER 5 MONTHS FROM THE EVENT

REACTIONS (1)
  - NEUTROPENIA [None]
